FAERS Safety Report 22605324 (Version 1)
Quarter: 2023Q2

REPORT INFORMATION
  Report Type: Spontaneous
  Country: GB (occurrence: GB)
  Receive Date: 20230615
  Receipt Date: 20230615
  Transmission Date: 20230722
  Serious: Yes (Other)
  Sender: FDA-Public Use
  Company Number: GB-BAYER-2023A080269

PATIENT
  Age: 21 Year
  Sex: Female

DRUGS (1)
  1. MIRENA [Suspect]
     Active Substance: LEVONORGESTREL
     Indication: Pregnancy
     Dosage: 20?G/DAY
     Route: 015
     Dates: start: 20180629

REACTIONS (2)
  - Pelvic infection [None]
  - Retinal migraine [None]

NARRATIVE: CASE EVENT DATE: 20200401
